FAERS Safety Report 8118439-X (Version None)
Quarter: 2011Q4

REPORT INFORMATION
  Report Type: 
  Country: None (occurrence: None)
  Receive Date: 20111227
  Receipt Date: 20111021
  Transmission Date: 20120403
  Serious: No
  Sender: FDA-Public Use
  Company Number: PHEH2011US06939

PATIENT
  Age: 39 Year
  Sex: Female

DRUGS (4)
  1. VITAMIN D [Concomitant]
  2. GILENYA [Suspect]
     Indication: MULTIPLE SCLEROSIS
     Dosage: 1 DF, QD, ORAL
     Route: 048
  3. VITAMIN B12 [Concomitant]
  4. GABAPENTIN [Concomitant]

REACTIONS (2)
  - FATIGUE [None]
  - ASTHENIA [None]
